FAERS Safety Report 13424693 (Version 1)
Quarter: 2017Q2

REPORT INFORMATION
  Report Type: Report from Study
  Country: US (occurrence: US)
  Receive Date: 20170410
  Receipt Date: 20170410
  Transmission Date: 20170830
  Serious: Yes (Death)
  Sender: FDA-Public Use
  Company Number: US-EXELIXIS-CABO-17008768

PATIENT
  Age: 64 Year
  Sex: Male

DRUGS (1)
  1. CABOMETYX [Suspect]
     Active Substance: CABOZANTINIB S-MALATE
     Indication: PRODUCT USED FOR UNKNOWN INDICATION
     Dosage: 60 MG, QD
     Route: 048
     Dates: start: 20170201, end: 20170322

REACTIONS (5)
  - Diarrhoea [Unknown]
  - Asthenia [Unknown]
  - Death [Fatal]
  - Vomiting [Unknown]
  - Oral pain [Unknown]

NARRATIVE: CASE EVENT DATE: 20170322
